FAERS Safety Report 22138768 (Version 1)
Quarter: 2023Q1

REPORT INFORMATION
  Report Type: Spontaneous
  Country: US (occurrence: US)
  Receive Date: 20230327
  Receipt Date: 20230327
  Transmission Date: 20230417
  Serious: No
  Sender: FDA-Public Use
  Company Number: US-SUN PHARMACEUTICAL INDUSTRIES LTD-2023R1-375343

PATIENT
  Sex: Female

DRUGS (2)
  1. WINLEVI [Suspect]
     Active Substance: CLASCOTERONE
     Indication: Product used for unknown indication
     Dosage: UNK
     Route: 065
  2. WINLEVI [Suspect]
     Active Substance: CLASCOTERONE
     Dosage: UNK
     Route: 065

REACTIONS (2)
  - Product use complaint [Unknown]
  - Product quality issue [Unknown]
